FAERS Safety Report 8091735-0 (Version None)
Quarter: 2012Q1

REPORT INFORMATION
  Report Type: 
  Country: None (occurrence: None)
  Receive Date: 20120131
  Receipt Date: 20120125
  Transmission Date: 20120608
  Serious: No
  Sender: FDA-Public Use
  Company Number: US-PFIZER INC-2011229189

PATIENT
  Sex: Male
  Weight: 83.9 kg

DRUGS (5)
  1. LISINOPRIL [Concomitant]
     Indication: HYPERTENSION
     Dosage: UNK
  2. LYRICA [Suspect]
  3. LYRICA [Suspect]
     Indication: NERVE INJURY
     Dosage: 200 MG, 3X/DAY
     Route: 048
     Dates: start: 20100201
  4. PERCOCET [Concomitant]
     Dosage: UNK
  5. SIMVASTATIN [Concomitant]
     Indication: BLOOD CHOLESTEROL INCREASED
     Dosage: UNK

REACTIONS (1)
  - PAIN IN EXTREMITY [None]
